FAERS Safety Report 5460890-0 (Version None)
Quarter: 2007Q3

REPORT INFORMATION
  Report Type: 
  Country: None (occurrence: None)
  Receive Date: 20070827
  Receipt Date: 20070425
  Transmission Date: 20080115
  Serious: Yes (Hospitalization)
  Sender: FDA-Public Use
  Company Number: 2007016735

PATIENT
  Age: 64 Year
  Sex: Female
  Weight: 54.4 kg

DRUGS (9)
  1. VFEND [Suspect]
     Indication: FUNGAL INFECTION
     Dosage: 400 MG (200 MG, 2 IN 1 D), ORAL
     Route: 048
     Dates: start: 20070131, end: 20070223
  2. SPIRIVA [Concomitant]
  3. ADVAIR DISKUS 100/50 [Concomitant]
  4. CLORAZEPAM (CLORAZEPATE DIPOTASSIUM) [Concomitant]
  5. OXYCODONE HCL [Concomitant]
  6. ZOCOR [Concomitant]
  7. NABUMETONE [Concomitant]
  8. VERAPAMIL [Concomitant]
  9. ENALAPRIL MALEATE [Concomitant]

REACTIONS (4)
  - ASTHENIA [None]
  - DRUG INEFFECTIVE [None]
  - LUNG INFECTION [None]
  - PRODUCTIVE COUGH [None]
